FAERS Safety Report 4896824-7 (Version None)
Quarter: 2006Q1

REPORT INFORMATION
  Report Type: 
  Country: None (occurrence: None)
  Receive Date: 20060126
  Receipt Date: 20060120
  Transmission Date: 20060701
  Serious: Yes (Hospitalization)
  Sender: FDA-Public Use
  Company Number: 200610228GDS

PATIENT
  Age: 70 Year
  Sex: Female

DRUGS (9)
  1. ASPIRIN [Suspect]
     Dosage: 100 MG, TOTAL DAILY, ORAL
     Route: 048
  2. METAMIZOLE [Suspect]
     Indication: ABDOMINAL PAIN
     Dosage: 2000 MG, TOTAL DAILY, ORAL
     Route: 048
     Dates: start: 20051112, end: 20051120
  3. METAMIZOLE [Suspect]
     Indication: PELVIC PAIN
     Dosage: 2000 MG, TOTAL DAILY, ORAL
     Route: 048
     Dates: start: 20051112, end: 20051120
  4. AMOXICILLIN AND CLAVULANATE POTASSIUM [Suspect]
     Indication: PROPHYLAXIS
     Dosage: 1875 MG, TOTAL DAILY, ORAL
     Route: 048
     Dates: start: 20051113
  5. PARACETAMOL [Suspect]
     Dosage: 4 G, TOTAL DAILY, ORAL
     Route: 048
     Dates: start: 20051112
  6. CANDESARTAN [Suspect]
     Dosage: 8 MG, TOTAL DAILY, ORAL
     Route: 048
  7. INDAPAMIDE [Suspect]
     Dosage: 1.5 MG, TOTAL DAILY, ORAL
     Route: 048
  8. LEVOTHYROXINE SODIUM [Concomitant]
  9. SIMVASTATIN [Concomitant]

REACTIONS (4)
  - ABDOMINAL PAIN [None]
  - AGRANULOCYTOSIS [None]
  - LEUKOPENIA [None]
  - NEUTROPENIA [None]
